FAERS Safety Report 4960748-7 (Version None)
Quarter: 2006Q2

REPORT INFORMATION
  Report Type: 
  Country: None (occurrence: None)
  Receive Date: 20060403
  Receipt Date: 20051006
  Transmission Date: 20061013
  Serious: Yes (Hospitalization, Other)
  Sender: FDA-Public Use
  Company Number: US-MERCK-0510USA04878

PATIENT
  Age: 68 Year
  Sex: Female
  Weight: 65 kg

DRUGS (8)
  1. VIOXX [Suspect]
     Indication: OSTEOARTHRITIS
     Route: 048
     Dates: start: 19990101, end: 20010101
  2. DIOVAN [Concomitant]
     Route: 048
  3. ROBAXIN [Concomitant]
     Indication: MUSCLE SPASMS
     Route: 048
     Dates: start: 20010307
  4. LOPRESSOR [Concomitant]
     Route: 065
  5. PRAVACHOL [Concomitant]
     Route: 048
     Dates: start: 20010307
  6. ALTACE [Concomitant]
     Route: 048
  7. LESCOL XL [Concomitant]
     Route: 048
  8. ZOCOR [Concomitant]
     Route: 048
     Dates: end: 20010307

REACTIONS (33)
  - ARTERIOSCLEROSIS [None]
  - ASTHENIA [None]
  - BREAST MICROCALCIFICATION [None]
  - BRONCHITIS [None]
  - CAROTID ARTERY DISEASE [None]
  - CHRONIC OBSTRUCTIVE PULMONARY DISEASE [None]
  - CORONARY ARTERY DISEASE [None]
  - CORONARY ARTERY OCCLUSION [None]
  - DEPRESSION [None]
  - DYSLIPIDAEMIA [None]
  - EMPHYSEMA [None]
  - GRANULOMA [None]
  - HAEMOPTYSIS [None]
  - HIATUS HERNIA [None]
  - HYPERCHOLESTEROLAEMIA [None]
  - HYPERGLYCAEMIA [None]
  - HYPERTENSION [None]
  - INTERMITTENT CLAUDICATION [None]
  - LUNG NEOPLASM [None]
  - MUSCLE SPASMS [None]
  - MYOCARDIAL INFARCTION [None]
  - NAUSEA [None]
  - OEDEMA PERIPHERAL [None]
  - PERIPHERAL ARTERIAL OCCLUSIVE DISEASE [None]
  - PERIPHERAL VASCULAR DISORDER [None]
  - PLEURAL EFFUSION [None]
  - PNEUMONIA [None]
  - POSTOPERATIVE INFECTION [None]
  - PULMONARY GRANULOMA [None]
  - RENAL ARTERY STENT PLACEMENT [None]
  - SYNCOPE [None]
  - UPPER RESPIRATORY TRACT INFECTION [None]
  - VOMITING [None]
